FAERS Safety Report 5278498-9 (Version None)
Quarter: 2007Q1

REPORT INFORMATION
  Report Type: 
  Country: None (occurrence: None)
  Receive Date: 20070328
  Receipt Date: 20070320
  Transmission Date: 20070707
  Serious: Yes (Other)
  Sender: FDA-Public Use
  Company Number: 2007UW05753

PATIENT
  Age: 80 Year
  Sex: Male
  Weight: 71 kg

DRUGS (2)
  1. TENORETIC 100 [Suspect]
     Indication: HYPERTENSION
     Route: 048
     Dates: end: 20070101
  2. DIAMICRON [Concomitant]
     Indication: DIABETES MELLITUS

REACTIONS (2)
  - DIABETES MELLITUS [None]
  - DRUG INEFFECTIVE [None]
